FAERS Safety Report 10924570 (Version 2)
Quarter: 2015Q2

REPORT INFORMATION
  Report Type: Spontaneous
  Country: US (occurrence: US)
  Receive Date: 20150318
  Receipt Date: 20150524
  Transmission Date: 20150821
  Serious: No
  Sender: FDA-Public Use
  Company Number: US-JNJFOC-20120814302

PATIENT
  Age: 64 Year
  Sex: Female
  Weight: 70.31 kg

DRUGS (8)
  1. OXYCODONE AND ACETAMINOPHEN [Concomitant]
     Active Substance: ACETAMINOPHEN\OXYCODONE\OXYCODONE HYDROCHLORIDE
     Indication: MUSCLE RELAXANT THERAPY
     Dosage: 5 MG/ 325 MG
     Route: 065
     Dates: start: 201008
  2. NIZORAL A-D [Suspect]
     Active Substance: KETOCONAZOLE
     Route: 061
  3. NIZORAL A-D [Suspect]
     Active Substance: KETOCONAZOLE
     Indication: DANDRUFF
     Route: 061
  4. ADVIL [Concomitant]
     Active Substance: IBUPROFEN
     Indication: ARTHRITIS
     Dosage: FOR YEARS
     Route: 065
  5. LISINOPRIL. [Concomitant]
     Active Substance: LISINOPRIL
     Indication: BLOOD PRESSURE
     Dosage: FOR YEARS
     Route: 065
  6. HYDROCORTISONE. [Concomitant]
     Active Substance: HYDROCORTISONE
     Indication: ROSACEA
     Dosage: WHEN NEEDED, 6 WEEKS
     Route: 065
     Dates: start: 201008
  7. DIAZEPAM. [Concomitant]
     Active Substance: DIAZEPAM
     Indication: RELAXATION THERAPY
     Dosage: 6 WEEKS
     Route: 065
     Dates: start: 201008
  8. CETIRIZINE HCL [Concomitant]
     Active Substance: CETIRIZINE HYDROCHLORIDE
     Indication: MULTIPLE ALLERGIES
     Dosage: YEARS
     Route: 065

REACTIONS (1)
  - Inappropriate schedule of drug administration [Not Recovered/Not Resolved]
